FAERS Safety Report 17374893 (Version 1)
Quarter: 2020Q1

REPORT INFORMATION
  Report Type: Spontaneous
  Country: US (occurrence: US)
  Receive Date: 20200204
  Receipt Date: 20200204
  Transmission Date: 20200409
  Serious: Yes (Life-Threatening, Hospitalization)
  Sender: FDA-Public Use
  Company Number: None

PATIENT
  Age: 75 Year
  Sex: Male

DRUGS (1)
  1. AMIODARONE [Suspect]
     Active Substance: AMIODARONE

REACTIONS (5)
  - Anaemia [None]
  - Hypotension [None]
  - Pulmonary toxicity [None]
  - Pulmonary fibrosis [None]
  - Emphysema [None]

NARRATIVE: CASE EVENT DATE: 20191016
